FAERS Safety Report 8088388-4 (Version None)
Quarter: 2012Q1

REPORT INFORMATION
  Report Type: 
  Country: None (occurrence: None)
  Receive Date: 20120128
  Receipt Date: 20110531
  Transmission Date: 20120608
  Serious: No
  Sender: FDA-Public Use
  Company Number: US-ABBOTT-11P-163-0729554-00

PATIENT
  Age: 61 Year
  Sex: Female

DRUGS (6)
  1. AMBIEN CR [Concomitant]
     Indication: INSOMNIA
     Dosage: 12.5 MG-AT BEDTIME
  2. FOLIC ACID [Concomitant]
     Indication: PRODUCT USED FOR UNKNOWN INDICATION
     Dosage: ONE DAILY
  3. HYDROXYCHLOROQUINE SULFATE [Concomitant]
     Indication: RHEUMATOID ARTHRITIS
     Dosage: 200 MG-BID
  4. METHOTREXATE [Concomitant]
     Indication: PRODUCT USED FOR UNKNOWN INDICATION
     Dosage: 2.5 MG-8 TABLETS WEEKLY
  5. HUMIRA [Suspect]
     Indication: RHEUMATOID ARTHRITIS
     Dates: start: 20100901
  6. ETODOLAC [Concomitant]
     Indication: RHEUMATOID ARTHRITIS
     Dosage: 400 MG-BID

REACTIONS (4)
  - DEVICE MALFUNCTION [None]
  - EYE PAIN [None]
  - ACCIDENTAL EXPOSURE [None]
  - EYE IRRITATION [None]
